FAERS Safety Report 13409796 (Version 2)
Quarter: 2017Q2

REPORT INFORMATION
  Report Type: Spontaneous
  Country: US (occurrence: US)
  Receive Date: 20170406
  Receipt Date: 20170421
  Transmission Date: 20170830
  Serious: No
  Sender: FDA-Public Use
  Company Number: US-PFIZER INC-2017142574

PATIENT
  Age: 48 Year
  Sex: Female

DRUGS (1)
  1. SOLU-MEDROL [Suspect]
     Active Substance: METHYLPREDNISOLONE SODIUM SUCCINATE
     Dosage: UNK
     Route: 042

REACTIONS (5)
  - Insomnia [Unknown]
  - Drug ineffective [Unknown]
  - Affect lability [Unknown]
  - Hyperglycaemia [Unknown]
  - Anxiety [Unknown]
